FAERS Safety Report 9948981 (Version 2)
Quarter: 2014Q2

REPORT INFORMATION
  Report Type: Not Available
  Country: SE (occurrence: SE)
  Receive Date: 20140304
  Receipt Date: 20140401
  Transmission Date: 20141212
  Serious: Yes (Life-Threatening)
  Sender: FDA-Public Use
  Company Number: SE-BEH-2014040893

PATIENT
  Age: 62 Year
  Sex: Female

DRUGS (13)
  1. PRIVIGEN [Suspect]
     Indication: CUTANEOUS VASCULITIS
     Dosage: START DATE: SINCE 2011
     Route: 042
  2. PRIVIGEN [Suspect]
     Dates: start: 20140128
  3. OMEPRAZOL [Concomitant]
     Indication: PROPHYLAXIS
     Route: 048
     Dates: start: 20111124
  4. CHOLECALCIFEROL [Concomitant]
     Indication: CALCINOSIS
     Route: 048
     Dates: start: 20130426
  5. DILTIAZEM [Concomitant]
     Indication: CALCINOSIS
     Route: 048
     Dates: start: 20130328
  6. ENALAPRIL [Concomitant]
     Indication: HYPERTENSION
     Route: 048
     Dates: start: 20120718
  7. PREDNISOLON [Concomitant]
     Indication: SYSTEMIC LUPUS ERYTHEMATOSUS
     Dosage: SINCE 1973
     Route: 048
  8. KETOBEMIDON [Concomitant]
     Indication: PAIN
     Route: 048
     Dates: start: 20101214
  9. KETOBEMIDON [Concomitant]
     Indication: PAIN
     Route: 048
     Dates: start: 20101214
  10. PARACETAMOL [Concomitant]
     Indication: SYSTEMIC LUPUS ERYTHEMATOSUS
     Dosage: BEFORE 2010
     Route: 048
  11. GABAPENTIN [Concomitant]
     Indication: SYSTEMIC LUPUS ERYTHEMATOSUS
     Dosage: BEFORE 2010
     Route: 048
  12. GABAPENTIN [Concomitant]
     Indication: PAIN
     Dosage: BEFORE 2010
     Route: 048
  13. ZOPIKLON [Concomitant]
     Indication: SLEEP DISORDER
     Route: 048

REACTIONS (18)
  - Respiratory arrest [Recovered/Resolved]
  - Anaphylactic reaction [Recovered/Resolved]
  - Type I hypersensitivity [Recovered/Resolved]
  - Pruritus generalised [Recovered/Resolved]
  - Hunger [Recovered/Resolved]
  - Flushing [Recovered/Resolved]
  - Pruritus [Recovered/Resolved]
  - Rash [Recovered/Resolved]
  - Swelling face [Recovered/Resolved]
  - Angioedema [Recovered/Resolved]
  - Urticaria [Recovered/Resolved]
  - Dizziness [Recovered/Resolved]
  - Syncope [Recovered/Resolved]
  - Paraesthesia [Recovered/Resolved]
  - Pharyngeal oedema [Recovered/Resolved]
  - Dyspnoea [Recovered/Resolved]
  - Dyspnoea [Recovered/Resolved]
  - Wheezing [Recovered/Resolved]
